FAERS Safety Report 13559147 (Version 1)
Quarter: 2017Q2

REPORT INFORMATION
  Report Type: Spontaneous
  Country: NL (occurrence: NL)
  Receive Date: 20170518
  Receipt Date: 20170518
  Transmission Date: 20170830
  Serious: Yes (Other)
  Sender: FDA-Public Use
  Company Number: NL-FRESENIUS KABI-FK201704045

PATIENT

DRUGS (1)
  1. CLADRIBINE (MANUFACTURER UNKNOWN) [Suspect]
     Active Substance: CLADRIBINE
     Indication: COELIAC DISEASE
     Route: 042

REACTIONS (2)
  - Hepatitis [Recovered/Resolved]
  - Pancytopenia [Recovered/Resolved]
